FAERS Safety Report 5618362-6 (Version None)
Quarter: 2008Q1

REPORT INFORMATION
  Report Type: 
  Country: None (occurrence: None)
  Receive Date: 20080207
  Receipt Date: 20080107
  Transmission Date: 20080703
  Serious: No
  Sender: FDA-Public Use
  Company Number: US-BAYER-200810522NA

PATIENT
  Age: 34 Year
  Sex: Female

DRUGS (1)
  1. AVELOX [Suspect]
     Indication: DRUG USE FOR UNKNOWN INDICATION
     Dosage: TOTAL DAILY DOSE: 400 MG  UNIT DOSE: 400 MG
     Route: 048
     Dates: start: 20080104, end: 20080105

REACTIONS (24)
  - ABNORMAL BEHAVIOUR [None]
  - AMNESIA [None]
  - ANOREXIA [None]
  - ANXIETY [None]
  - ASTHENIA [None]
  - CHEST PAIN [None]
  - CONFUSIONAL STATE [None]
  - DELUSIONAL PERCEPTION [None]
  - DEPRESSION [None]
  - DISORIENTATION [None]
  - DIZZINESS [None]
  - DYSGEUSIA [None]
  - EYE DISORDER [None]
  - HALLUCINATION [None]
  - HALLUCINATION, VISUAL [None]
  - HEADACHE [None]
  - HYPERHIDROSIS [None]
  - HYPOAESTHESIA [None]
  - INSOMNIA [None]
  - PARAESTHESIA [None]
  - PHARYNGOLARYNGEAL DISCOMFORT [None]
  - SCREAMING [None]
  - SYNCOPE [None]
  - VOMITING [None]
